FAERS Safety Report 6140240-7 (Version None)
Quarter: 2009Q2

REPORT INFORMATION
  Report Type: 
  Country: None (occurrence: None)
  Receive Date: 20090401
  Receipt Date: 20090325
  Transmission Date: 20091009
  Serious: Yes (Hospitalization)
  Sender: FDA-Public Use
  Company Number: GB-WYE-G03391209

PATIENT
  Age: 59 Year
  Sex: Male
  Weight: 69 kg

DRUGS (7)
  1. VENLAFAXINE HYDROCHLORIDE [Suspect]
     Indication: DEPRESSION
     Route: 048
     Dates: start: 20090205, end: 20090209
  2. DIAZEPAM [Concomitant]
     Dosage: UNKNOWN
  3. PARACETAMOL [Concomitant]
     Dosage: UNKNOWN
  4. IBUPROFEN [Concomitant]
     Dosage: UNKNOWN
  5. MIRTAZAPINE [Concomitant]
     Dosage: UNKNOWN
  6. CLOZAPINE [Concomitant]
     Dosage: UNKNOWN
  7. FLUPENTIXOL [Concomitant]
     Dosage: UNKNOWN

REACTIONS (3)
  - NOCTURIA [None]
  - SUPRAPUBIC PAIN [None]
  - URINARY RETENTION [None]
